FAERS Safety Report 7400826-6 (Version None)
Quarter: 2011Q2

REPORT INFORMATION
  Report Type: 
  Country: None (occurrence: None)
  Receive Date: 20110407
  Receipt Date: 20110307
  Transmission Date: 20111010
  Serious: Yes (Hospitalization, Other)
  Sender: FDA-Public Use
  Company Number: US-BAYER-201025630NA

PATIENT
  Sex: Female
  Weight: 91 kg

DRUGS (3)
  1. YASMIN [Suspect]
     Indication: PRODUCT USED FOR UNKNOWN INDICATION
     Dosage: UNK UNK, UNK
     Route: 048
     Dates: start: 20010101
  2. OCELLA [Suspect]
     Dosage: UNK
  3. PREVACID [Concomitant]
     Dosage: 30 MG, UNK

REACTIONS (6)
  - CHOLECYSTITIS INFECTIVE [None]
  - CHOLECYSTITIS CHRONIC [None]
  - BILIARY COLIC [None]
  - CHOLELITHIASIS [None]
  - ABDOMINAL PAIN UPPER [None]
  - GALLBLADDER DISORDER [None]
